FAERS Safety Report 20097717 (Version 1)
Quarter: 2021Q4

REPORT INFORMATION
  Report Type: Spontaneous
  Country: JP (occurrence: JP)
  Receive Date: 20211122
  Receipt Date: 20211122
  Transmission Date: 20220303
  Serious: Yes (Other)
  Sender: FDA-Public Use
  Company Number: JP-PFIZER INC-202101531495

PATIENT
  Age: 37 Year
  Sex: Female

DRUGS (2)
  1. VIBRAMYCIN [Suspect]
     Active Substance: DOXYCYCLINE
     Indication: Acne
     Dosage: 100 MG, DAILY
     Route: 048
     Dates: start: 202110, end: 202110
  2. ADAPALENE NIPRO [Concomitant]
     Dosage: UNK

REACTIONS (2)
  - Lymphadenopathy [Unknown]
  - Off label use [Unknown]

NARRATIVE: CASE EVENT DATE: 20211001
